FAERS Safety Report 4490426-2 (Version None)
Quarter: 2004Q4

REPORT INFORMATION
  Report Type: 
  Country: None (occurrence: None)
  Receive Date: 20041028
  Receipt Date: 20041014
  Transmission Date: 20050328
  Serious: Yes (Other)
  Sender: FDA-Public Use
  Company Number: 2004239669JP

PATIENT
  Age: 45 Year
  Sex: Male

DRUGS (3)
  1. SOLU-CORTEF (HYDROCORTISONE)POWEDER, STERILE [Suspect]
     Indication: HORMONE REPLACEMENT THERAPY
     Dosage: 300 MG, QD
     Dates: start: 20030301
  2. LYSODREN [Concomitant]
  3. ETOPOSIDE [Concomitant]

REACTIONS (2)
  - CONDITION AGGRAVATED [None]
  - METASTASES TO LIVER [None]
